FAERS Safety Report 9270000 (Version 1)
Quarter: 2013Q2

REPORT INFORMATION
  Report Type: Spontaneous
  Country: JP (occurrence: None)
  Receive Date: 20130502
  Receipt Date: 20130502
  Transmission Date: 20140414
  Serious: Yes (Death)
  Sender: FDA-Public Use
  Company Number: SYM-2013-03257

PATIENT
  Age: 71 Year
  Sex: Male

DRUGS (4)
  1. FLUOROURACIL (FLUOROURACIL) (FLUOROURACIL) [Suspect]
     Indication: METASTASES TO LIVER
     Dates: start: 2010
  2. CALCIUM LEVOFOLINATE [Suspect]
     Indication: RECTAL CANCER
     Dates: start: 2010
  3. OXALIPLATIN [Suspect]
     Indication: METASTASES TO LIVER
     Dates: start: 2010
  4. CETUXIMAB [Suspect]
     Indication: RECTAL CANCER

REACTIONS (1)
  - Interstitial lung disease [None]
